FAERS Safety Report 25737247 (Version 2)
Quarter: 2025Q4

REPORT INFORMATION
  Report Type: Spontaneous
  Country: RU (occurrence: RU)
  Receive Date: 20250828
  Receipt Date: 20251110
  Transmission Date: 20260117
  Serious: Yes (Life-Threatening, Other)
  Sender: NOVARTIS
  Company Number: RU-002147023-NVSC2025RU132540

PATIENT
  Age: 5 Year
  Sex: Female
  Weight: 18 kg

DRUGS (12)
  1. ZOLGENSMA [Suspect]
     Active Substance: ONASEMNOGENE ABEPARVOVEC-XIOI
     Indication: Spinal muscular atrophy
     Dosage: 101.8 ML, ONCE/SINGLE
     Route: 042
     Dates: start: 20250811, end: 20250811
  2. PREDNISONE [Concomitant]
     Active Substance: PREDNISONE
     Indication: Product used for unknown indication
     Dosage: 18 MG, QD
     Route: 048
     Dates: start: 20250809
  3. PREDNISONE [Concomitant]
     Active Substance: PREDNISONE
     Dosage: UNK (36.2 MG (2MG/KG/DAYS))
     Route: 042
     Dates: start: 20250818
  4. PREDNISONE [Concomitant]
     Active Substance: PREDNISONE
     Dosage: 18.75 MG, (1MG/KG/DAY)
     Route: 048
     Dates: start: 20250809, end: 20250815
  5. PREDNISONE [Concomitant]
     Active Substance: PREDNISONE
     Dosage: UNK,37.5MG  (2MG/KG/D AY)
     Route: 065
     Dates: start: 20250816, end: 20250831
  6. NEXIUM [Concomitant]
     Active Substance: ESOMEPRAZOLE MAGNESIUM
     Indication: Product used for unknown indication
     Dosage: 10 MG, QD
     Route: 048
     Dates: start: 20250809
  7. MAGNESIUM ASPARTATE\POTASSIUM ASPARTATE [Concomitant]
     Active Substance: MAGNESIUM ASPARTATE\POTASSIUM ASPARTATE
     Indication: Product used for unknown indication
     Dosage: UNK, BID (0.5)
     Route: 048
     Dates: start: 20250809
  8. ALUMINUM PHOSPHATE [Concomitant]
     Active Substance: ALUMINUM PHOSPHATE
     Indication: Product used for unknown indication
     Dosage: UNK, TID (1 SACHET )
     Route: 048
     Dates: start: 20250813
  9. ECULIZUMAB [Concomitant]
     Active Substance: ECULIZUMAB
     Indication: Product used for unknown indication
     Dosage: UNK, 300MG/S
     Route: 065
     Dates: start: 20250905
  10. ECULIZUMAB [Concomitant]
     Active Substance: ECULIZUMAB
     Dosage: UNK, 300MG/S
     Route: 065
     Dates: start: 20250919
  11. ECULIZUMAB [Concomitant]
     Active Substance: ECULIZUMAB
     Dosage: UNK, 600MG/S
     Route: 065
     Dates: start: 20250822
  12. ECULIZUMAB [Concomitant]
     Active Substance: ECULIZUMAB
     Dosage: UNK, 600MG/S
     Route: 065
     Dates: start: 20250829

REACTIONS (11)
  - Thrombotic microangiopathy [Not Recovered/Not Resolved]
  - Transaminases increased [Recovering/Resolving]
  - Vomiting [Recovering/Resolving]
  - Headache [Recovering/Resolving]
  - Body temperature increased [Recovering/Resolving]
  - Thrombocytopenia [Recovering/Resolving]
  - Anuria [Recovering/Resolving]
  - Posterior reversible encephalopathy syndrome [Unknown]
  - Seizure [Unknown]
  - Oedema [Unknown]
  - Anaemia [Recovering/Resolving]

NARRATIVE: CASE EVENT DATE: 20250812
